FAERS Safety Report 14931061 (Version 1)
Quarter: 2018Q2

REPORT INFORMATION
  Report Type: Other
  Country: DE (occurrence: DE)
  Receive Date: 20180524
  Receipt Date: 20180524
  Transmission Date: 20180711
  Serious: No
  Sender: FDA-Public Use
  Company Number: DE-LUPIN PHARMACEUTICALS INC.-2018-01548

PATIENT
  Sex: Male

DRUGS (1)
  1. QUETIAPINE. [Suspect]
     Active Substance: QUETIAPINE
     Indication: PRODUCT USED FOR UNKNOWN INDICATION
     Dosage: UNK, THERAPY WITH QUETIAPINE IN THE LAST 10 YEARS
     Route: 065

REACTIONS (3)
  - Low density lipoprotein increased [Unknown]
  - High density lipoprotein decreased [Unknown]
  - Blood cholesterol increased [Unknown]
